FAERS Safety Report 25034033 (Version 1)
Quarter: 2025Q1

REPORT INFORMATION
  Report Type: Spontaneous
  Country: GB (occurrence: GB)
  Receive Date: 20250304
  Receipt Date: 20250304
  Transmission Date: 20250409
  Serious: Yes (Other)
  Sender: BANNER
  Company Number: None

PATIENT
  Age: 53 Year
  Sex: Female
  Weight: 165 kg

DRUGS (1)
  1. IBUPROFEN [Suspect]
     Active Substance: IBUPROFEN
     Indication: Ill-defined disorder

REACTIONS (1)
  - Hypersensitivity [Unknown]
